FAERS Safety Report 9072221 (Version 1)
Quarter: 2013Q1

REPORT INFORMATION
  Report Type: Report from Study
  Country: US (occurrence: US)
  Receive Date: 20130129
  Receipt Date: 20130129
  Transmission Date: 20140127
  Serious: No
  Sender: FDA-Public Use
  Company Number: US-ABBOTT-12P-163-0938910-00

PATIENT
  Age: 59 Year
  Sex: Female

DRUGS (4)
  1. HUMIRA 40 MG/0.8 ML PEN [Suspect]
     Indication: CROHN^S DISEASE
     Dosage: 120MG LOADING DOSE (PARTIAL DOSE DUE TO MISFIRE)
     Route: 058
     Dates: start: 20120523
  2. INSULIN [Concomitant]
     Indication: DIABETES MELLITUS
     Dosage: PER SLIDING SCALE
  3. PRILOSEC [Concomitant]
     Indication: GASTROOESOPHAGEAL REFLUX DISEASE
  4. VSL 3 [Concomitant]
     Indication: CROHN^S DISEASE

REACTIONS (3)
  - Device malfunction [Recovered/Resolved]
  - Injection site anaesthesia [Recovered/Resolved]
  - Incorrect dose administered [Unknown]
